FAERS Safety Report 9819327 (Version 2)
Quarter: 2014Q3

REPORT INFORMATION
  Report Type: Spontaneous
  Country: US (occurrence: None)
  Receive Date: 20140113
  Receipt Date: 20140709
  Transmission Date: 20150326
  Serious: Yes (Other)
  Sender: FDA-Public Use
  Company Number: ADR-2014-00046

PATIENT
  Sex: Male

DRUGS (2)
  1. LIORESAL [Suspect]
     Active Substance: BACLOFEN
     Dosage: SEE B5, CREAM (TOPICAL)
  2. VANCOMYCIN [Suspect]
     Active Substance: VANCOMYCIN
     Dosage: INTRATHECAL
     Route: 037

REACTIONS (22)
  - Implant site erythema [None]
  - Granuloma [None]
  - No therapeutic response [None]
  - Meningitis bacterial [None]
  - Limb discomfort [None]
  - Muscle spasms [None]
  - Body temperature increased [None]
  - Implant site vesicles [None]
  - Staphylococcus test positive [None]
  - Pain [None]
  - Hypotonia [None]
  - Infusion site mass [None]
  - Muscle spasticity [None]
  - Implant site mass [None]
  - Implant site scar [None]
  - Post procedural infection [None]
  - Implant site inflammation [None]
  - Abdominal rigidity [None]
  - Impaired healing [None]
  - Overdose [None]
  - Drug ineffective [None]
  - Headache [None]

NARRATIVE: CASE EVENT DATE: 20130527
